FAERS Safety Report 16708386 (Version 1)
Quarter: 2019Q3

REPORT INFORMATION
  Report Type: Spontaneous
  Country: US (occurrence: US)
  Receive Date: 20190816
  Receipt Date: 20190816
  Transmission Date: 20191004
  Serious: No
  Sender: FDA-Public Use
  Company Number: US-ASTRAZENECA-2019SF14330

PATIENT
  Age: 867 Month
  Sex: Female
  Weight: 81.6 kg

DRUGS (7)
  1. AMOXICILLIN. [Concomitant]
     Active Substance: AMOXICILLIN
     Indication: ANTIBIOTIC THERAPY
     Route: 065
  2. PRILOSEC [Suspect]
     Active Substance: OMEPRAZOLE MAGNESIUM
     Indication: DYSPEPSIA
     Route: 048
  3. FLONASE [Concomitant]
     Active Substance: FLUTICASONE PROPIONATE
     Indication: MULTIPLE ALLERGIES
     Route: 045
  4. RANITIDINE. [Concomitant]
     Active Substance: RANITIDINE
     Route: 065
  5. BENTYL [Concomitant]
     Active Substance: DICYCLOMINE HYDROCHLORIDE
     Route: 065
  6. PRILOSEC [Suspect]
     Active Substance: OMEPRAZOLE MAGNESIUM
     Indication: DYSPEPSIA
     Route: 048
  7. ESOMEPRAZOLE MAGNESIUM. [Suspect]
     Active Substance: ESOMEPRAZOLE MAGNESIUM
     Indication: GASTROOESOPHAGEAL REFLUX DISEASE
     Route: 048
     Dates: start: 20190702, end: 20190722

REACTIONS (11)
  - Lymphadenopathy [Unknown]
  - Adverse reaction [Unknown]
  - Oral pain [Unknown]
  - Sinus congestion [Unknown]
  - Product use issue [Unknown]
  - Oral pain [Recovering/Resolving]
  - Swollen tongue [Recovering/Resolving]
  - Drug ineffective [Recovered/Resolved]
  - Oral mucosal erythema [Recovered/Resolved]
  - Chills [Unknown]
  - Pain in jaw [Unknown]

NARRATIVE: CASE EVENT DATE: 201907
